FAERS Safety Report 4624910-5 (Version None)
Quarter: 2005Q2

REPORT INFORMATION
  Report Type: 
  Country: None (occurrence: None)
  Receive Date: 20050325
  Receipt Date: 20050111
  Transmission Date: 20051028
  Serious: No
  Sender: FDA-Public Use
  Company Number: USA050187949

PATIENT
  Age: 66 Year
  Sex: Female
  Weight: 58 kg

DRUGS (13)
  1. FORTEO [Suspect]
     Indication: OSTEOPOROSIS
     Dates: start: 20041201
  2. PLAQUENIL [Concomitant]
  3. SALSALATE [Concomitant]
  4. AZULFIDINE [Concomitant]
  5. LISINOPRIL [Concomitant]
  6. SYNTHROID [Concomitant]
  7. CALCIUM GLUCONATE [Concomitant]
  8. VITAMIN D [Concomitant]
  9. PREMPRO [Concomitant]
  10. MULTI-VITAMIN [Concomitant]
  11. MILK THISTLE (SILYBUM MARIANUM) [Concomitant]
  12. GARLIC [Concomitant]
  13. PREDNISONE [Concomitant]

REACTIONS (5)
  - FEELING ABNORMAL [None]
  - MOVEMENT DISORDER [None]
  - MUSCLE SPASMS [None]
  - PAIN IN EXTREMITY [None]
  - RHEUMATOID ARTHRITIS [None]
